FAERS Safety Report 7648658-8 (Version None)
Quarter: 2011Q3

REPORT INFORMATION
  Report Type: 
  Country: None (occurrence: None)
  Receive Date: 20110801
  Receipt Date: 20110729
  Transmission Date: 20111222
  Serious: No
  Sender: FDA-Public Use
  Company Number: US-PFIZER INC-2011173597

PATIENT
  Sex: Female
  Weight: 25.397 kg

DRUGS (3)
  1. TEMPRA [Concomitant]
     Dosage: UNK
  2. RESTORIL [Concomitant]
     Dosage: UNK
  3. DILANTIN-125 [Suspect]
     Indication: EPILEPSY
     Dosage: 100 MG, 2X/DAY
     Route: 048
     Dates: start: 20110728

REACTIONS (1)
  - RASH PRURITIC [None]
